FAERS Safety Report 24225635 (Version 1)
Quarter: 2024Q3

REPORT INFORMATION
  Report Type: Spontaneous
  Country: CN (occurrence: CN)
  Receive Date: 20240820
  Receipt Date: 20240820
  Transmission Date: 20241016
  Serious: Yes (Disabling)
  Sender: ROCHE
  Company Number: CN-CHEPLA-2024010498

PATIENT
  Age: 55 Year
  Sex: Male
  Weight: 74.1 kg

DRUGS (5)
  1. VALGANCICLOVIR [Suspect]
     Active Substance: VALGANCICLOVIR
     Indication: Antiviral treatment
     Dosage: APPROVAL NO.H20150330/900MG (8-1)
     Route: 048
     Dates: start: 20240801, end: 20240801
  2. LINEZOLID [Suspect]
     Active Substance: LINEZOLID
     Indication: Anti-infective therapy
     Route: 065
     Dates: start: 20240731
  3. IMIPENEM AND CILASTATIN [Suspect]
     Active Substance: CILASTATIN SODIUM\IMIPENEM
     Indication: Anti-infective therapy
     Route: 065
     Dates: start: 20240731
  4. CASPOFUNGIN [Suspect]
     Active Substance: CASPOFUNGIN
     Indication: Anti-infective therapy
     Route: 065
     Dates: start: 20240731
  5. GANCICLOVIR [Suspect]
     Active Substance: GANCICLOVIR
     Indication: Antiviral treatment
     Dosage: APPROVAL NO.H20041909/BID/ROA: IV DRIP/0.4G Q12H (7-31~8-1)
     Route: 042
     Dates: start: 20240731, end: 20240801

REACTIONS (1)
  - Renal impairment [Recovering/Resolving]

NARRATIVE: CASE EVENT DATE: 20240803
